FAERS Safety Report 7413350-1 (Version None)
Quarter: 2011Q2

REPORT INFORMATION
  Report Type: 
  Country: None (occurrence: None)
  Receive Date: 20110413
  Receipt Date: 20101228
  Transmission Date: 20111010
  Serious: No
  Sender: FDA-Public Use
  Company Number: US-ASTRAZENECA-2010SE61048

PATIENT
  Age: 67 Year
  Sex: Female
  Weight: 81.6 kg

DRUGS (1)
  1. TENORMIN [Suspect]
     Indication: TACHYCARDIA
     Route: 048

REACTIONS (2)
  - HEART RATE INCREASED [None]
  - DRUG EFFECT DECREASED [None]
